FAERS Safety Report 24948082 (Version 1)
Quarter: 2025Q1

REPORT INFORMATION
  Report Type: Spontaneous
  Country: GB (occurrence: GB)
  Receive Date: 20250210
  Receipt Date: 20250210
  Transmission Date: 20250408
  Serious: No
  Sender: ALKEM
  Company Number: None

PATIENT
  Age: 73 Year
  Sex: Female
  Weight: 57.154 kg

DRUGS (3)
  1. EZETIMIBE [Suspect]
     Active Substance: EZETIMIBE
     Indication: Transient ischaemic attack
     Dosage: UNK, QD (ONE TO BE TAKEN EACH DAY)
     Route: 065
     Dates: start: 20240108, end: 20240205
  2. EZETIMIBE [Suspect]
     Active Substance: EZETIMIBE
     Indication: Blood cholesterol increased
     Dosage: UNK, QD (ONE TO BE TAKEN EACH DAY)
     Route: 065
     Dates: start: 20240108, end: 20240205
  3. COMIRNATY (RAXTOZINAMERAN) [Concomitant]
     Active Substance: RAXTOZINAMERAN
     Indication: Product used for unknown indication
     Route: 030
     Dates: start: 20231121

REACTIONS (3)
  - Muscle spasms [Recovered/Resolved]
  - Pruritus [Recovered/Resolved]
  - Adverse drug reaction [Recovered/Resolved]
